FAERS Safety Report 7863570-7 (Version None)
Quarter: 2011Q4

REPORT INFORMATION
  Report Type: 
  Country: None (occurrence: None)
  Receive Date: 20111027
  Receipt Date: 20101207
  Transmission Date: 20120403
  Serious: No
  Sender: FDA-Public Use
  Company Number: US-AMGEN-USASP2010007900

PATIENT
  Age: 63 Year
  Sex: Female
  Weight: 77.098 kg

DRUGS (14)
  1. SPIROLACTON [Concomitant]
     Dosage: 25 MG, UNK
  2. OMEPRAZOLE [Concomitant]
     Dosage: 10 MG, UNK
  3. LEXAPRO [Concomitant]
     Dosage: 5 MG, UNK
  4. ZIAC                               /01166101/ [Concomitant]
  5. ENBREL [Suspect]
     Indication: PRODUCT USED FOR UNKNOWN INDICATION
     Dosage: 50 MG, QWK
  6. VYTORIN [Concomitant]
  7. ZAROXOLYN [Concomitant]
     Dosage: 2.5 MG, UNK
  8. AMBIEN [Concomitant]
     Dosage: 5 MG, UNK
  9. TRAMADOL HCL [Concomitant]
     Dosage: 50 MG, UNK
  10. POTASSIUM CHLORIDE [Concomitant]
     Dosage: 10 MEQ, UNK
  11. AMLODIPINE [Concomitant]
     Dosage: 2.5 MG, UNK
  12. PREDNISONE [Concomitant]
     Dosage: 1 MG, UNK
  13. REVATIO [Concomitant]
     Dosage: 20 MG, UNK
  14. LEFLUNOMIDE [Concomitant]
     Dosage: 10 MG, UNK

REACTIONS (1)
  - CONTUSION [None]
